FAERS Safety Report 20220163 (Version 2)
Quarter: 2021Q4

REPORT INFORMATION
  Report Type: Spontaneous
  Country: GB (occurrence: GB)
  Receive Date: 20211223
  Receipt Date: 20211231
  Transmission Date: 20220303
  Serious: Yes (Life-Threatening)
  Sender: FDA-Public Use
  Company Number: GB-MHRA-EMIS-1699-2ab3d1e0-3d42-485a-a440-a60ec5103d7e

PATIENT
  Age: 20 Year
  Sex: Male
  Weight: 72 kg

DRUGS (3)
  1. ISOTRETINOIN [Suspect]
     Active Substance: ISOTRETINOIN
     Indication: Product used for unknown indication
     Dosage: UNK, ONCE DAILY
     Route: 065
     Dates: start: 20210730, end: 20211209
  2. SERTRALINE [Concomitant]
     Active Substance: SERTRALINE HYDROCHLORIDE
     Indication: Depression
     Dosage: UNK, ONE TO BE TAKEN EACH DAY
     Route: 065
     Dates: start: 20211105, end: 20211204
  3. SERTRALINE [Concomitant]
     Active Substance: SERTRALINE HYDROCHLORIDE
     Dosage: UNK, ONE TO BE TAKEN EACH DAY
     Route: 065
     Dates: start: 20211112

REACTIONS (1)
  - Suicidal ideation [Recovering/Resolving]

NARRATIVE: CASE EVENT DATE: 20211101
